FAERS Safety Report 10205158 (Version 2)
Quarter: 2014Q2

REPORT INFORMATION
  Report Type: Report from Study
  Country: BE (occurrence: BE)
  Receive Date: 20140529
  Receipt Date: 20140529
  Transmission Date: 20141212
  Serious: Yes (Hospitalization)
  Sender: FDA-Public Use
  Company Number: BE-ABBVIE-12P-013-1026343-00

PATIENT
  Age: 45 Year
  Sex: Female

DRUGS (7)
  1. HUMIRA [Suspect]
     Indication: PSORIASIS
     Dates: start: 20120207, end: 20120423
  2. SIPRALEXA [Concomitant]
     Indication: PRODUCT USED FOR UNKNOWN INDICATION
     Dates: start: 2010
  3. XANAX [Concomitant]
     Indication: PRODUCT USED FOR UNKNOWN INDICATION
     Dosage: 0.5 UNIT IN THE EVENING AND AT NIGHT
  4. MIRELLE [Concomitant]
     Indication: PRODUCT USED FOR UNKNOWN INDICATION
  5. SUPPOSITORY PREPARATIONS [Concomitant]
     Indication: PRODUCT USED FOR UNKNOWN INDICATION
  6. PANADOL [Concomitant]
     Indication: MIGRAINE
  7. CAFEINA [Concomitant]
     Indication: MIGRAINE

REACTIONS (7)
  - Depression [Recovering/Resolving]
  - Back pain [Recovering/Resolving]
  - Intervertebral disc protrusion [Unknown]
  - Back disorder [Unknown]
  - Immunodeficiency [Unknown]
  - Malaise [Unknown]
  - Psoriasis [Unknown]
